FAERS Safety Report 14965258 (Version 4)
Quarter: 2019Q1

REPORT INFORMATION
  Report Type: Report from Study
  Country: US (occurrence: US)
  Receive Date: 20180601
  Receipt Date: 20190320
  Transmission Date: 20190417
  Serious: Yes (Death, Hospitalization)
  Sender: FDA-Public Use
  Company Number: US-ACTELION-A-NJ2018-171023

PATIENT
  Age: 61 Year
  Sex: Female
  Weight: 88.44 kg

DRUGS (5)
  1. DILTIAZEM. [Concomitant]
     Active Substance: DILTIAZEM
  2. WARFARIN [Concomitant]
     Active Substance: WARFARIN
  3. ADCIRCA [Concomitant]
     Active Substance: TADALAFIL
  4. OPSUMIT [Suspect]
     Active Substance: MACITENTAN
     Indication: PULMONARY ARTERIAL HYPERTENSION
     Dosage: 10 MG, QD
     Route: 048
  5. ELIQUIS [Concomitant]
     Active Substance: APIXABAN

REACTIONS (8)
  - Abdominal pain [Unknown]
  - Gastrointestinal disorder [Unknown]
  - Gallbladder disorder [Unknown]
  - Gastroenteritis viral [Unknown]
  - Vomiting [Unknown]
  - Death [Fatal]
  - Syncope [Unknown]
  - Nausea [Unknown]

NARRATIVE: CASE EVENT DATE: 20190105
